FAERS Safety Report 6480021-8 (Version None)
Quarter: 2009Q4

REPORT INFORMATION
  Report Type: 
  Country: None (occurrence: None)
  Receive Date: 20091208
  Receipt Date: 20091130
  Transmission Date: 20100525
  Serious: Yes (Death, Hospitalization)
  Sender: FDA-Public Use
  Company Number: JP-BAYER-200913808BYL

PATIENT
  Age: 78 Year
  Sex: Male
  Weight: 72 kg

DRUGS (8)
  1. NEXAVAR [Suspect]
     Indication: HEPATIC NEOPLASM MALIGNANT
     Dosage: TOTAL DAILY DOSE: 800 MG  UNIT DOSE: 200 MG
     Route: 048
     Dates: start: 20090724, end: 20090913
  2. MELBIN [Concomitant]
     Dosage: FROM BEFORE ADMINISTRATION
     Route: 048
  3. GLIMICRON [Concomitant]
     Dosage: FROM BEFORE ADMINISTRATION
     Route: 048
  4. ADALAT [Concomitant]
     Dosage: FROM BEFORE ADMINISTRATION
     Route: 048
  5. ACTOS [Concomitant]
     Dosage: FROM BEFORE ADMINISTRATION
     Route: 048
  6. ATARAX [Concomitant]
     Indication: INSOMNIA
     Dosage: FROM BEFORE ADMINISTRATION
     Route: 048
  7. LASIX [Concomitant]
     Dosage: FROM BEFORE ADMINISTRATION
     Route: 048
  8. MUCOSTA [Concomitant]
     Indication: GASTRITIS PROPHYLAXIS
     Route: 048
     Dates: start: 20090724

REACTIONS (6)
  - ABDOMINAL PAIN UPPER [None]
  - ASCITES [None]
  - DECREASED APPETITE [None]
  - DIARRHOEA [None]
  - HEPATIC FAILURE [None]
  - OEDEMA PERIPHERAL [None]
